FAERS Safety Report 11853146 (Version 2)
Quarter: 2015Q4

REPORT INFORMATION
  Report Type: Spontaneous
  Country: AU (occurrence: AU)
  Receive Date: 20151218
  Receipt Date: 20151229
  Transmission Date: 20160305
  Serious: Yes (Hospitalization)
  Sender: FDA-Public Use
  Company Number: AU-BAUSCH-BL-2015-030458

PATIENT
  Age: 32 Year
  Sex: Male

DRUGS (1)
  1. FLUOROURACIL. [Suspect]
     Active Substance: FLUOROURACIL
     Indication: PRODUCT USED FOR UNKNOWN INDICATION
     Route: 065

REACTIONS (4)
  - Cardiomyopathy [Recovering/Resolving]
  - Multi-organ failure [Recovering/Resolving]
  - Cardiogenic shock [Recovering/Resolving]
  - Cardiac failure acute [Recovering/Resolving]
